FAERS Safety Report 16850363 (Version 1)
Quarter: 2019Q3

REPORT INFORMATION
  Report Type: Spontaneous
  Country: US (occurrence: US)
  Receive Date: 20190802
  Receipt Date: 20190802
  Transmission Date: 20191005
  Serious: Yes (Hospitalization)
  Sender: FDA-Public Use
  Company Number: None

PATIENT
  Age: 41 Year
  Sex: Female

DRUGS (12)
  1. DEXAMETHASONE. [Concomitant]
     Active Substance: DEXAMETHASONE
  2. NYSTATIN. [Concomitant]
     Active Substance: NYSTATIN
  3. POSACONAZOLE [Suspect]
     Active Substance: POSACONAZOLE
     Indication: PNEUMONIA
     Route: 048
     Dates: start: 20190323, end: 20190414
  4. ONDANSETRON [Suspect]
     Active Substance: ONDANSETRON
     Route: 042
  5. GUAFENESIN [Concomitant]
     Active Substance: GUAIFENESIN
  6. CEFEPIME [Concomitant]
     Active Substance: CEFEPIME HYDROCHLORIDE
  7. LOPERAMIDE [Concomitant]
     Active Substance: LOPERAMIDE
  8. MELATONIN [Concomitant]
     Active Substance: MELATONIN
  9. FAMOTIDINE. [Concomitant]
     Active Substance: FAMOTIDINE
  10. ACYCLOVIR. [Concomitant]
     Active Substance: ACYCLOVIR
  11. ALLOPURINOL. [Concomitant]
     Active Substance: ALLOPURINOL
  12. DIPHENHYDRAMINE. [Concomitant]
     Active Substance: DIPHENHYDRAMINE

REACTIONS (3)
  - Cardiac arrest [None]
  - Torsade de pointes [None]
  - Electrocardiogram QT prolonged [None]

NARRATIVE: CASE EVENT DATE: 20190414
